FAERS Safety Report 15698790 (Version 1)
Quarter: 2018Q4

REPORT INFORMATION
  Report Type: Spontaneous
  Country: FR (occurrence: FR)
  Receive Date: 20181207
  Receipt Date: 20181207
  Transmission Date: 20190205
  Serious: Yes (Other)
  Sender: FDA-Public Use
  Company Number: FR-ASTELLAS-2018US051643

PATIENT
  Age: 49 Year

DRUGS (6)
  1. RIBAVIRIN. [Suspect]
     Active Substance: RIBAVIRIN
     Indication: HEPATITIS E
     Route: 065
     Dates: start: 201407
  2. TACROLIMUS. [Suspect]
     Active Substance: TACROLIMUS
     Indication: HEART TRANSPLANT
     Route: 065
  3. RIBAVIRIN. [Suspect]
     Active Substance: RIBAVIRIN
     Route: 065
     Dates: start: 201509
  4. PREDNISONE. [Suspect]
     Active Substance: PREDNISONE
     Indication: HEART TRANSPLANT
     Route: 065
  5. TACROLIMUS. [Suspect]
     Active Substance: TACROLIMUS
     Route: 065
     Dates: start: 2015
  6. SOFOSBUVIR [Concomitant]
     Active Substance: SOFOSBUVIR
     Indication: HEPATITIS E
     Route: 065
     Dates: start: 201605

REACTIONS (6)
  - Haemoglobin decreased [Unknown]
  - Hepatitis E [Unknown]
  - Epstein-Barr virus infection [Unknown]
  - Haemolysis [Unknown]
  - Post transplant lymphoproliferative disorder [Recovered/Resolved]
  - Transaminases increased [Unknown]

NARRATIVE: CASE EVENT DATE: 2015
